FAERS Safety Report 16658158 (Version 2)
Quarter: 2019Q3

REPORT INFORMATION
  Report Type: Spontaneous
  Country: JP (occurrence: JP)
  Receive Date: 20190801
  Receipt Date: 20190809
  Transmission Date: 20191004
  Serious: No
  Sender: FDA-Public Use
  Company Number: JP-GLAXOSMITHKLINE-JP2019JPN136691

PATIENT
  Age: 28 Year
  Sex: Female

DRUGS (2)
  1. LAMICTAL [Suspect]
     Active Substance: LAMOTRIGINE
     Indication: PERSISTENT DEPRESSIVE DISORDER
     Dosage: UNK
     Route: 048
  2. LAMICTAL [Suspect]
     Active Substance: LAMOTRIGINE
     Dosage: 600 MG, SINGLE
     Route: 048
     Dates: start: 201907, end: 201907

REACTIONS (2)
  - Product use in unapproved indication [Unknown]
  - Intentional overdose [Unknown]

NARRATIVE: CASE EVENT DATE: 201907
